FAERS Safety Report 9232765 (Version 2)
Quarter: 2013Q2

REPORT INFORMATION
  Report Type: Spontaneous
  Country: US (occurrence: None)
  Receive Date: 20121031
  Receipt Date: 20130107
  Transmission Date: 20140414
  Serious: Yes (Other)
  Sender: FDA-Public Use
  Company Number: PHEH2012US011816

PATIENT
  Age: 30 Year
  Sex: Female
  Weight: 55.3 kg

DRUGS (3)
  1. GILENYA (FTY) CAPSULE, 0.5 MG [Suspect]
     Indication: MULTIPLE SCLEROSIS
     Route: 048
     Dates: start: 20120612
  2. HERBAL PREPARATION (NO INGREDIENTS/SUBSTANCES) [Concomitant]
  3. VITAMINS NOS (VITAMINS NOS) [Concomitant]

REACTIONS (3)
  - Dysgeusia [None]
  - Dizziness [None]
  - Alopecia [None]
